FAERS Safety Report 22171398 (Version 3)
Quarter: 2023Q2

REPORT INFORMATION
  Report Type: Spontaneous
  Country: US (occurrence: US)
  Receive Date: 20230404
  Receipt Date: 20230522
  Transmission Date: 20230722
  Serious: No
  Sender: FDA-Public Use
  Company Number: US-PFIZER INC-202300134355

PATIENT
  Age: 13 Year
  Sex: Female
  Weight: 32.653 kg

DRUGS (1)
  1. GENOTROPIN [Suspect]
     Active Substance: SOMATROPIN
     Indication: Blood growth hormone
     Dosage: 0.9 MG, DAILY (THEY ARE ALTERNATING 0.8MG AND 1.0MG EVERY OTHER DAY)

REACTIONS (4)
  - Product prescribing error [Unknown]
  - Intentional product misuse [Unknown]
  - Device information output issue [Unknown]
  - Device use issue [Unknown]
